FAERS Safety Report 8195498-X (Version None)
Quarter: 2012Q1

REPORT INFORMATION
  Report Type: 
  Country: None (occurrence: None)
  Receive Date: 20120308
  Receipt Date: 20120305
  Transmission Date: 20120608
  Serious: Yes (Death)
  Sender: FDA-Public Use
  Company Number: PHHY2011AU105082

PATIENT
  Sex: Male

DRUGS (15)
  1. FISHAPHOS [Concomitant]
     Dosage: 15 ML, IN MORNING
  2. IRBESARTAN [Concomitant]
     Dosage: 150 MG, UNK 0.5 DAILY
  3. XALATAN [Concomitant]
     Dosage: 50 UG, EYE DROP
  4. FOLATE SODIUM [Concomitant]
     Dosage: 600 UG, QD
  5. CALCIUM [Concomitant]
     Dosage: UNK UKN, UNK
  6. WARFARIN SODIUM [Concomitant]
     Dosage: 3 MG, UNK
  7. CELESTON [Concomitant]
     Dosage: 0.02 %, CREAM
  8. MACU-VISION [Concomitant]
  9. CORDARONE [Concomitant]
     Dosage: 200 MG, QD
  10. WARFARIN SODIUM [Concomitant]
     Dosage: 5 MG, UNK
  11. VITAMIN D [Concomitant]
     Dosage: 200 IU, UNK
  12. ZOLEDRONOC ACID [Suspect]
     Dosage: 5 MG,
     Route: 042
  13. ZOLEDRONOC ACID [Suspect]
     Dosage: 5 MG,
     Route: 042
     Dates: start: 20100427
  14. NEXIUM [Concomitant]
     Dosage: 20 MG, UNK
  15. CALCIUM CARBONATE [Concomitant]
     Dosage: 1 TWICE A DAY WITH MEALS

REACTIONS (1)
  - DEATH [None]
